FAERS Safety Report 20144809 (Version 1)
Quarter: 2021Q4

REPORT INFORMATION
  Report Type: Report from Study
  Country: US (occurrence: None)
  Receive Date: 20211203
  Receipt Date: 20211203
  Transmission Date: 20220303
  Serious: Yes (Other)
  Sender: FDA-Public Use
  Company Number: US-ROCHE-2102426

PATIENT
  Age: 65 Year
  Sex: Male
  Weight: 104.8 kg

DRUGS (14)
  1. ATEZOLIZUMAB [Suspect]
     Active Substance: ATEZOLIZUMAB
     Indication: Colorectal cancer metastatic
     Dosage: 22/MAR/2018, RECEIVED DOSE PRIOR TO SAE
     Route: 042
     Dates: start: 20171116
  2. CAPECITABINE [Suspect]
     Active Substance: CAPECITABINE
     Indication: Colorectal cancer metastatic
     Dosage: 04/APR/2018, RECEIVED DOSE OF 850 MG PRIOR TO SAE
     Route: 048
     Dates: start: 20171116
  3. BEVACIZUMAB [Suspect]
     Active Substance: BEVACIZUMAB
     Indication: Colorectal cancer metastatic
     Dosage: 22/MAR/2018, RECEIVE PRIOR DOSE OF 7.5 MG TO SAE
     Route: 042
     Dates: start: 20171116
  4. CETUXIMAB [Concomitant]
     Active Substance: CETUXIMAB
     Dates: start: 201609, end: 201610
  5. LONSURF [Concomitant]
     Active Substance: TIPIRACIL HYDROCHLORIDE\TRIFLURIDINE
     Dates: start: 201611, end: 201704
  6. LEUCOVORIN [Concomitant]
     Active Substance: LEUCOVORIN
     Dates: start: 201510, end: 201607
  7. LEUCOVORIN [Concomitant]
     Active Substance: LEUCOVORIN
     Dates: start: 201705, end: 201708
  8. LEUCOVORIN [Concomitant]
     Active Substance: LEUCOVORIN
     Dates: start: 201609, end: 201610
  9. FLUOROURACIL [Concomitant]
     Active Substance: FLUOROURACIL
     Dates: start: 201510, end: 201607
  10. FLUOROURACIL [Concomitant]
     Active Substance: FLUOROURACIL
     Dates: start: 201705, end: 201708
  11. FLUOROURACIL [Concomitant]
     Active Substance: FLUOROURACIL
     Dates: start: 201609, end: 201610
  12. OXALIPLATIN [Concomitant]
     Active Substance: OXALIPLATIN
     Dates: start: 201510, end: 201607
  13. IRINOTECAN [Concomitant]
     Active Substance: IRINOTECAN
     Dates: start: 201705, end: 201708
  14. IRINOTECAN [Concomitant]
     Active Substance: IRINOTECAN
     Dates: start: 201609, end: 201610

REACTIONS (2)
  - Hypertension [Recovered/Resolved]
  - Influenza like illness [Recovered/Resolved]

NARRATIVE: CASE EVENT DATE: 20180228
